FAERS Safety Report 16276308 (Version 1)
Quarter: 2019Q2

REPORT INFORMATION
  Report Type: Other
  Country: US (occurrence: US)
  Receive Date: 20190505
  Receipt Date: 20190505
  Transmission Date: 20190711
  Serious: Yes (Other)
  Sender: FDA-Public Use
  Company Number: US-DEXPHARM-20190294

PATIENT
  Age: 67 Year
  Sex: Male

DRUGS (2)
  1. LEDIPASVIR/SOFOSBUVIR [Suspect]
     Active Substance: LEDIPASVIR\SOFOSBUVIR
     Indication: HEPATITIS C VIRUS TEST POSITIVE
     Dosage: IN THE MORNING
  2. OMEPRAZOLE. [Interacting]
     Active Substance: OMEPRAZOLE
     Indication: GASTROOESOPHAGEAL REFLUX DISEASE
     Dosage: IN THE MORNING

REACTIONS (3)
  - Drug resistance [Recovered/Resolved]
  - Drug interaction [Recovered/Resolved]
  - Treatment failure [Recovered/Resolved]
